FAERS Safety Report 4778527-2 (Version None)
Quarter: 2005Q3

REPORT INFORMATION
  Report Type: 
  Country: None (occurrence: None)
  Receive Date: 20050926
  Receipt Date: 20050628
  Transmission Date: 20060218
  Serious: No
  Sender: FDA-Public Use
  Company Number: US-BRISTOL-MYERS SQUIBB COMPANY-13018148

PATIENT

DRUGS (3)
  1. REYATAZ [Suspect]
  2. EPIVIR [Suspect]
  3. ZIAGEN [Suspect]

REACTIONS (2)
  - T-LYMPHOCYTE COUNT DECREASED [None]
  - VIRAL LOAD INCREASED [None]
